FAERS Safety Report 16693142 (Version 1)
Quarter: 2019Q4

REPORT INFORMATION
  Report Type: Spontaneous
  Country: US (occurrence: US)
  Receive Date: 20190811
  Receipt Date: 20190811
  Transmission Date: 20200122
  Serious: Yes (Other)
  Sender: FDA-Public Use
  Company Number: None

PATIENT
  Age: 46 Year
  Sex: Male
  Weight: 63 kg

DRUGS (16)
  1. BACLOFEN. [Concomitant]
     Active Substance: BACLOFEN
  2. DULOXETINE. [Concomitant]
     Active Substance: DULOXETINE
  3. HYDOCODONE-ACETAMINOPHEN [Concomitant]
  4. DIAZEPAM. [Concomitant]
     Active Substance: DIAZEPAM
  5. AMBIEN [Concomitant]
     Active Substance: ZOLPIDEM TARTRATE
  6. KETOROLAC [Concomitant]
     Active Substance: KETOROLAC TROMETHAMINE
  7. MAGNESIUM ORAL [Concomitant]
  8. METHYLPHENIDATE. [Concomitant]
     Active Substance: METHYLPHENIDATE
  9. OMEGA 3 FATTY ACIDS-VITAMIN E [Concomitant]
  10. CELEBREX [Concomitant]
     Active Substance: CELECOXIB
  11. COSENTYX [Suspect]
     Active Substance: SECUKINUMAB
     Indication: ANKYLOSING SPONDYLITIS
     Dates: start: 20160801, end: 20170601
  12. CALCIUM ORAL [Concomitant]
  13. DPHENOXYLATE-ATROPINE [Concomitant]
  14. OMEPRAZOLE. [Concomitant]
     Active Substance: OMEPRAZOLE
  15. PSYLLIUM SEED WITH EDXTROSE [Concomitant]
  16. COD LIVER OIL [Concomitant]
     Active Substance: COD LIVER OIL

REACTIONS (3)
  - Diarrhoea [None]
  - Colitis [None]
  - Haematochezia [None]

NARRATIVE: CASE EVENT DATE: 20170601
